FAERS Safety Report 9933244 (Version 2)
Quarter: 2014Q1

REPORT INFORMATION
  Report Type: Report from Study
  Country: US (occurrence: US)
  Receive Date: 20140228
  Receipt Date: 20140228
  Transmission Date: 20141002
  Serious: No
  Sender: FDA-Public Use
  Company Number: US-MYLANLABS-2013S1001653

PATIENT
  Age: 28 Year
  Sex: Female

DRUGS (5)
  1. AMNESTEEM CAPSULES [Suspect]
     Indication: KERATOSIS FOLLICULAR
     Dosage: THERPAY WAS ON AND OFF FROM JUL-1997 TO JAN-2013
     Route: 048
     Dates: start: 199707, end: 20130105
  2. SOTRET [Suspect]
     Indication: KERATOSIS FOLLICULAR
  3. ACCUTANE [Suspect]
     Indication: KERATOSIS FOLLICULAR
  4. CLARAVIS [Suspect]
     Indication: KERATOSIS FOLLICULAR
  5. ORAL CONTRACEPTIVE NOS [Concomitant]

REACTIONS (5)
  - Myalgia [Recovered/Resolved]
  - Arthralgia [Recovered/Resolved]
  - Blood cholesterol increased [Not Recovered/Not Resolved]
  - Low density lipoprotein increased [Not Recovered/Not Resolved]
  - Blood alkaline phosphatase decreased [Not Recovered/Not Resolved]
